FAERS Safety Report 5563857-7 (Version None)
Quarter: 2007Q4

REPORT INFORMATION
  Report Type: 
  Country: None (occurrence: None)
  Receive Date: 20071217
  Receipt Date: 20071002
  Transmission Date: 20080405
  Serious: No
  Sender: FDA-Public Use
  Company Number: US-ASTRAZENECA-2007UW23003

PATIENT
  Age: 71 Year
  Sex: Female
  Weight: 72.1 kg

DRUGS (6)
  1. CRESTOR [Suspect]
     Route: 048
  2. AMARYL [Concomitant]
  3. DARVON [Concomitant]
  4. AVANDIA [Concomitant]
  5. PRANDIN [Concomitant]
  6. CHROMIUM PICOLINATE [Concomitant]

REACTIONS (4)
  - DIZZINESS [None]
  - HEART RATE DECREASED [None]
  - VISION BLURRED [None]
  - VISUAL DISTURBANCE [None]
